FAERS Safety Report 19445916 (Version 4)
Quarter: 2021Q3

REPORT INFORMATION
  Report Type: Spontaneous
  Country: US (occurrence: US)
  Receive Date: 20210622
  Receipt Date: 20210728
  Transmission Date: 20211014
  Serious: Yes (Hospitalization)
  Sender: FDA-Public Use
  Company Number: US-GLAXOSMITHKLINE-US2021AMR130766

PATIENT
  Sex: Female

DRUGS (2)
  1. ZEJULA [Suspect]
     Active Substance: NIRAPARIB
     Indication: OVARIAN CANCER
     Dosage: 300 MG, QD
     Dates: start: 20210529
  2. ZEJULA [Suspect]
     Active Substance: NIRAPARIB
     Dosage: 300 MG, QD
     Dates: end: 20210624

REACTIONS (7)
  - General physical health deterioration [Unknown]
  - Adverse drug reaction [Unknown]
  - Full blood count decreased [Unknown]
  - Decreased appetite [Unknown]
  - Asthenia [Unknown]
  - Oropharyngeal pain [Unknown]
  - Stomatitis [Unknown]
